FAERS Safety Report 9463912 (Version 1)
Quarter: 2013Q3

REPORT INFORMATION
  Report Type: Spontaneous
  Country: CH (occurrence: CH)
  Receive Date: 20130819
  Receipt Date: 20130819
  Transmission Date: 20140515
  Serious: Yes (Hospitalization, Other)
  Sender: FDA-Public Use
  Company Number: CH-PFIZER INC-2013237614

PATIENT
  Age: 76 Year
  Sex: Female
  Weight: 100.8 kg

DRUGS (16)
  1. LYRICA [Suspect]
     Indication: BACK PAIN
     Dosage: 25 MG, 2X/DAY
     Route: 048
     Dates: start: 20130214, end: 20130226
  2. LYRICA [Suspect]
     Indication: NEURALGIA
  3. CALCIPARINE ^DIFREX^ [Concomitant]
     Indication: THROMBOSIS PROPHYLAXIS
     Dosage: 5000 IU, 2X/DAY
     Route: 058
     Dates: start: 20130214
  4. CITALOPRAM [Concomitant]
     Indication: DEPRESSION
     Dosage: 20 MG, 1X/DAY
     Route: 048
     Dates: start: 20130215
  5. DISTRANEURIN [Concomitant]
     Indication: CONDUCT DISORDER
     Dosage: 300 MG, 1X/DAY
     Route: 048
     Dates: start: 20130214
  6. APROVEL [Concomitant]
     Indication: HYPERTENSION
     Dosage: 150 MG, 1X/DAY
     Route: 048
     Dates: end: 20130301
  7. DAFALGAN [Concomitant]
     Indication: BACK PAIN
     Dosage: 1 G, 3X/DAY
     Route: 048
  8. VI-DE 3 [Concomitant]
     Indication: VITAMIN D DEFICIENCY
     Dosage: 800 IU, 1X/DAY
     Route: 048
  9. INSULATARD HM [Concomitant]
     Indication: TYPE 1 DIABETES MELLITUS
     Dosage: 40 IU, 1X/DAY
     Route: 058
     Dates: end: 20130228
  10. LANTUS [Concomitant]
     Indication: TYPE 1 DIABETES MELLITUS
     Dosage: 30 IU, 1X/DAY
     Route: 058
     Dates: start: 20130228
  11. BELOC [Concomitant]
     Indication: MYOCARDIAL ISCHAEMIA
     Dosage: 75 MG, 1X/DAY
     Route: 048
  12. LAXOBERON [Concomitant]
     Indication: CONSTIPATION
     Dosage: 10 MG, 1X/DAY
     Route: 048
     Dates: start: 20130214
  13. PREDNISON [Concomitant]
     Indication: POLYMYALGIA RHEUMATICA
     Dosage: 8 MG, 1X/DAY
     Route: 048
  14. TEMGESIC ^ESSEX PHARMA^ [Concomitant]
     Indication: BACK PAIN
     Dosage: 0.2 MG, 2X/DAY
     Route: 060
     Dates: start: 20130214
  15. TEMGESIC ^ESSEX PHARMA^ [Concomitant]
     Indication: NEURALGIA
  16. SELIPRAN [Concomitant]
     Indication: HYPERCHOLESTEROLAEMIA
     Dosage: 20 MG, 1X/DAY
     Route: 048
     Dates: end: 20130214

REACTIONS (3)
  - Oedema peripheral [Recovering/Resolving]
  - Fall [Unknown]
  - Somnolence [Unknown]
